FAERS Safety Report 4889100-X (Version None)
Quarter: 2005Q4

REPORT INFORMATION
  Report Type: 
  Country: None (occurrence: None)
  Receive Date: 20051215
  Receipt Date: 20050922
  Transmission Date: 20060501
  Serious: Yes (Hospitalization, Other)
  Sender: FDA-Public Use
  Company Number: 2005131112

PATIENT
  Age: 39 Year
  Sex: Female

DRUGS (2)
  1. BEXTRA [Suspect]
     Indication: ANTIINFLAMMATORY THERAPY
     Dosage: 40 MG (20 MG, 2 IN 1 D),
     Dates: start: 20031101, end: 20050501
  2. BEXTRA [Suspect]
     Indication: PAIN
     Dosage: 40 MG (20 MG, 2 IN 1 D),
     Dates: start: 20031101, end: 20050501

REACTIONS (4)
  - DYSPNOEA [None]
  - MYOCARDIAL INFARCTION [None]
  - PARAESTHESIA [None]
  - WEIGHT INCREASED [None]
